FAERS Safety Report 6197199-6 (Version None)
Quarter: 2009Q2

REPORT INFORMATION
  Report Type: 
  Country: None (occurrence: None)
  Receive Date: 20090520
  Receipt Date: 20090513
  Transmission Date: 20091009
  Serious: Yes (Disabling)
  Sender: FDA-Public Use
  Company Number: US-MERCK-0811USA03808

PATIENT
  Age: 47 Year
  Sex: Female

DRUGS (2)
  1. FOSAMAX [Suspect]
     Indication: OSTEOPOROSIS
     Route: 048
     Dates: start: 19970101, end: 20070601
  2. FOSAMAX [Suspect]
     Route: 048
     Dates: start: 19960101

REACTIONS (12)
  - ANXIETY [None]
  - BLOOD CHOLESTEROL INCREASED [None]
  - BONE DISORDER [None]
  - DEPRESSION [None]
  - DRUG ADMINISTRATION ERROR [None]
  - FRACTURE [None]
  - JAW DISORDER [None]
  - MENTAL DISORDER [None]
  - ORAL INFECTION [None]
  - OSTEONECROSIS [None]
  - OVERDOSE [None]
  - TOOTH DISORDER [None]
